FAERS Safety Report 23596153 (Version 2)
Quarter: 2024Q2

REPORT INFORMATION
  Report Type: Spontaneous
  Country: US (occurrence: US)
  Receive Date: 20240305
  Receipt Date: 20240507
  Transmission Date: 20240715
  Serious: No
  Sender: FDA-Public Use
  Company Number: US-JNJFOC-20240275579

PATIENT
  Age: 20 Year
  Sex: Female

DRUGS (3)
  1. TYLENOL 8HR [Suspect]
     Active Substance: ACETAMINOPHEN
     Indication: Headache
     Route: 048
     Dates: start: 200409, end: 200502
  2. TYLENOL 8HR [Suspect]
     Active Substance: ACETAMINOPHEN
     Indication: Migraine
  3. FOLIC ACID [Concomitant]
     Active Substance: FOLIC ACID
     Indication: Nutritional supplementation
     Route: 065
     Dates: start: 200409, end: 200502

REACTIONS (1)
  - Exposure during pregnancy [Unknown]

NARRATIVE: CASE EVENT DATE: 20040901
